FAERS Safety Report 7049474-0 (Version None)
Quarter: 2010Q4

REPORT INFORMATION
  Report Type: 
  Country: None (occurrence: None)
  Receive Date: 20101012
  Receipt Date: 20100927
  Transmission Date: 20110411
  Serious: Yes (Hospitalization, Other)
  Sender: FDA-Public Use
  Company Number: AUR-APL-2010-02386

PATIENT
  Age: 14 Year
  Sex: Female

DRUGS (4)
  1. LAMOTRIGINE [Suspect]
     Indication: EPILEPSY
     Dosage: 200MG-BID-ORAL
     Route: 048
  2. TOPIRAMATE [Suspect]
  3. TOPAMAX [Suspect]
     Indication: PETIT MAL EPILEPSY
     Dosage: 25-125MG - QD-BID - ORAL
     Route: 048
     Dates: start: 20070401
  4. TOPAMAX [Suspect]

REACTIONS (9)
  - BALANCE DISORDER [None]
  - DIZZINESS [None]
  - DYSARTHRIA [None]
  - GAIT DISTURBANCE [None]
  - HEADACHE [None]
  - NERVOUS SYSTEM DISORDER [None]
  - PETIT MAL EPILEPSY [None]
  - PRODUCT SUBSTITUTION ISSUE [None]
  - VISION BLURRED [None]
